FAERS Safety Report 5509638-1 (Version None)
Quarter: 2007Q4

REPORT INFORMATION
  Report Type: 
  Country: None (occurrence: None)
  Receive Date: 20071108
  Receipt Date: 20071029
  Transmission Date: 20080405
  Serious: Yes (Other)
  Sender: FDA-Public Use
  Company Number: PHBS2007JP18196

PATIENT
  Age: 23 Year
  Sex: Male

DRUGS (2)
  1. RITALIN [Suspect]
     Indication: DEPRESSION
     Dosage: 20 MG/DAY
     Route: 048
     Dates: end: 20071026
  2. PEMOLINE [Suspect]
     Indication: DEPRESSION
     Dates: start: 20071027

REACTIONS (2)
  - GAIT DISTURBANCE [None]
  - TREMOR [None]
